FAERS Safety Report 5074131-X (Version None)
Quarter: 2006Q3

REPORT INFORMATION
  Report Type: 
  Country: None (occurrence: None)
  Receive Date: 20060803
  Receipt Date: 20060724
  Transmission Date: 20061208
  Serious: Yes (Hospitalization)
  Sender: FDA-Public Use
  Company Number: 2006080206

PATIENT
  Age: 71 Year
  Sex: Female
  Weight: 88 kg

DRUGS (4)
  1. LONOLOX (MINOXIDIL) [Suspect]
     Indication: HYPERTENSION
     Dosage: 11.25 MG (2.5 MG), ORAL
     Route: 048
     Dates: start: 20050101
  2. ASPIRIN [Concomitant]
  3. ALLOPURINOL [Concomitant]
  4. TOREM (TORASEMIDE) [Concomitant]

REACTIONS (2)
  - ANTINUCLEAR ANTIBODY POSITIVE [None]
  - PERICARDIAL EFFUSION [None]
